FAERS Safety Report 10413178 (Version 1)
Quarter: 2014Q3

REPORT INFORMATION
  Report Type: Spontaneous
  Country: US (occurrence: US)
  Receive Date: 20140827
  Receipt Date: 20140827
  Transmission Date: 20150326
  Serious: Yes (Other)
  Sender: FDA-Public Use
  Company Number: PHHY2014US103538

PATIENT
  Age: 55 Year
  Sex: Female

DRUGS (2)
  1. ARGATROBAN. [Suspect]
     Active Substance: ARGATROBAN
     Indication: ANTICOAGULANT THERAPY
  2. HEPARIN [Suspect]
     Active Substance: HEPARIN SODIUM
     Indication: THROMBOSIS PROPHYLAXIS
     Route: 058

REACTIONS (10)
  - Haemorrhage intracranial [Recovered/Resolved]
  - Antiphospholipid antibodies positive [Recovered/Resolved]
  - Cerebral venous thrombosis [Recovered/Resolved]
  - Nausea [Recovered/Resolved]
  - Headache [Recovered/Resolved]
  - Heparin-induced thrombocytopenia [Recovered/Resolved]
  - Disease progression [Recovered/Resolved]
  - Antiphospholipid syndrome [Recovered/Resolved]
  - Tremor [Not Recovered/Not Resolved]
  - Cerebral haemorrhage [Recovered/Resolved]
